FAERS Safety Report 5309409-5 (Version None)
Quarter: 2007Q2

REPORT INFORMATION
  Report Type: 
  Country: None (occurrence: None)
  Receive Date: 20070424
  Receipt Date: 20070424
  Transmission Date: 20071010
  Serious: No
  Sender: FDA-Public Use
  Company Number: None

PATIENT

DRUGS (1)
  1. HUMIRA [Suspect]
     Indication: RHEUMATOID ARTHRITIS
     Dosage: 40 MG BI-WEEKLY
     Dates: start: 20070422, end: 20070422

REACTIONS (2)
  - INJECTION SITE PAIN [None]
  - MEDICAL DEVICE COMPLICATION [None]
